FAERS Safety Report 8765671 (Version 3)
Quarter: 2012Q4

REPORT INFORMATION
  Report Type: 
  Country: IE (occurrence: IE)
  Receive Date: 20120904
  Receipt Date: 20121227
  Transmission Date: 20130627
  Serious: Yes (Hospitalization, Other)
  Sender: FDA-Public Use
  Company Number: PHHY2012IE075432

PATIENT
  Age: 25 Year
  Sex: Female

DRUGS (11)
  1. TOBI PODHALER [Suspect]
     Indication: CYSTIC FIBROSIS
     Dosage: 112 mg, BID
     Dates: start: 201208
  2. TOBRAMYCIN [Suspect]
     Dosage: UNK UKN, UNK
     Route: 042
  3. LEVOFLOXACIN [Concomitant]
  4. AZITHROMYCIN [Concomitant]
  5. VENTOLIN NEBULES [Concomitant]
  6. PULMOZYME [Concomitant]
  7. CREON [Concomitant]
  8. VITAMIN D [Concomitant]
  9. AQUADERM [Concomitant]
  10. LANTUS [Concomitant]
  11. NOVORAPID [Concomitant]

REACTIONS (4)
  - Chest discomfort [Recovered/Resolved]
  - Oxygen saturation decreased [Recovered/Resolved]
  - Cough [Recovered/Resolved]
  - Wheezing [Recovered/Resolved]
